FAERS Safety Report 4995162-1 (Version None)
Quarter: 2006Q2

REPORT INFORMATION
  Report Type: 
  Country: None (occurrence: None)
  Receive Date: 20060508
  Receipt Date: 20041222
  Transmission Date: 20061013
  Serious: Yes (Hospitalization)
  Sender: FDA-Public Use
  Company Number: US-MERCK-0412USA02795

PATIENT
  Age: 48 Year
  Sex: Female

DRUGS (1)
  1. VIOXX [Suspect]
     Route: 048
     Dates: start: 19990101, end: 20030101

REACTIONS (34)
  - ABSCESS LIMB [None]
  - ANAEMIA [None]
  - ANGIOPATHY [None]
  - ARTERIAL INSUFFICIENCY [None]
  - ARTERIAL OCCLUSIVE DISEASE [None]
  - ARTERIOSCLEROSIS [None]
  - BACK PAIN [None]
  - BURSITIS [None]
  - CARDIOMYOPATHY [None]
  - CARPAL TUNNEL SYNDROME [None]
  - CELLULITIS [None]
  - CORONARY ARTERY DISEASE [None]
  - CYANOSIS [None]
  - DIABETES MELLITUS INSULIN-DEPENDENT [None]
  - DIABETES MELLITUS NON-INSULIN-DEPENDENT [None]
  - DRY GANGRENE [None]
  - EJECTION FRACTION DECREASED [None]
  - ESCHERICHIA URINARY TRACT INFECTION [None]
  - EXTREMITY NECROSIS [None]
  - FINGER AMPUTATION [None]
  - GANGRENE [None]
  - HYPERTENSION [None]
  - IRON DEFICIENCY [None]
  - MALNUTRITION [None]
  - MICROCYTOSIS [None]
  - OSTEOMYELITIS [None]
  - OSTEOPOROSIS [None]
  - SKIN ULCER [None]
  - STAPHYLOCOCCAL INFECTION [None]
  - TENDONITIS [None]
  - THROMBOSIS [None]
  - ULCER [None]
  - URINARY TRACT INFECTION [None]
  - VASCULITIS [None]
